FAERS Safety Report 9675737 (Version 1)
Quarter: 2013Q4

REPORT INFORMATION
  Report Type: Spontaneous
  Country: US (occurrence: None)
  Receive Date: 20131105
  Receipt Date: 20131105
  Transmission Date: 20140711
  Serious: Yes (Other)
  Sender: FDA-Public Use
  Company Number: 2013-US-002553

PATIENT
  Sex: Female
  Weight: 75.3 kg

DRUGS (6)
  1. XYREM [Suspect]
     Indication: NARCOLEPSY
     Route: 048
     Dates: start: 200601, end: 2006
  2. PROVIGIL (MODAFINIL) [Concomitant]
  3. SYNTHROID (LEVOTHYROXINE SODIUM) [Concomitant]
  4. ADDERALL (AMFETAMINE ASPARATE, AMFETAMINE SULFATE, DEXAMFETAMINE SACCHARATE, DEXAMFETAMINE SULFATE) [Concomitant]
  5. RISPERDAL (RISPERIDONE) [Concomitant]
  6. XANAX (ALPRAZOLAM) [Concomitant]

REACTIONS (3)
  - Bipolar I disorder [None]
  - Condition aggravated [None]
  - Poor quality sleep [None]
